FAERS Safety Report 16844625 (Version 3)
Quarter: 2019Q4

REPORT INFORMATION
  Report Type: Report from Study
  Country: None (occurrence: US)
  Receive Date: 20190924
  Receipt Date: 20191016
  Transmission Date: 20200122
  Serious: Yes (Other)
  Sender: FDA-Public Use
  Company Number: US-ABBVIE-19K-163-2932142-00

PATIENT
  Age: 61 Year
  Sex: Female

DRUGS (1)
  1. MARINOL [Suspect]
     Active Substance: DRONABINOL
     Indication: PRODUCT USED FOR UNKNOWN INDICATION
     Route: 048

REACTIONS (5)
  - Catheterisation venous [Unknown]
  - Vulval disorder [Unknown]
  - Central venous catheter removal [Unknown]
  - Catheterisation venous [Unknown]
  - Appendicectomy [Unknown]

NARRATIVE: CASE EVENT DATE: 20151008
